FAERS Safety Report 11942323 (Version 2)
Quarter: 2018Q3

REPORT INFORMATION
  Report Type: Report from Study
  Country: BR (occurrence: BR)
  Receive Date: 20160125
  Receipt Date: 20180802
  Transmission Date: 20181010
  Serious: Yes (Other)
  Sender: FDA-Public Use
  Company Number: BR-ROCHE-1697607

PATIENT
  Sex: Female
  Weight: 60 kg

DRUGS (4)
  1. ALENDRONATE SODIUM. [Concomitant]
     Active Substance: ALENDRONATE SODIUM
     Route: 065
  2. ACTEMRA [Suspect]
     Active Substance: TOCILIZUMAB
     Indication: RHEUMATOID ARTHRITIS
     Dosage: 01/DEC/2015, RECEIVED MOST RECENT DOSE
     Route: 042
     Dates: start: 20131125
  3. ARAVA [Concomitant]
     Active Substance: LEFLUNOMIDE
     Indication: RHEUMATOID ARTHRITIS
  4. IBUPROFEN. [Concomitant]
     Active Substance: IBUPROFEN
     Indication: SPINAL PAIN

REACTIONS (12)
  - Foot fracture [Unknown]
  - Rheumatoid arthritis [Unknown]
  - Oropharyngeal pain [Recovering/Resolving]
  - Sciatica [Unknown]
  - Inflammation [Unknown]
  - Hypovitaminosis [Unknown]
  - Blood cholesterol abnormal [Unknown]
  - Intervertebral disc protrusion [Unknown]
  - Pain [Unknown]
  - Influenza [Recovering/Resolving]
  - Headache [Recovering/Resolving]
  - Pyrexia [Recovering/Resolving]

NARRATIVE: CASE EVENT DATE: 2014
